FAERS Safety Report 5608059-0 (Version None)
Quarter: 2008Q1

REPORT INFORMATION
  Report Type: 
  Country: None (occurrence: None)
  Receive Date: 20080128
  Receipt Date: 20080128
  Transmission Date: 20080703
  Serious: Yes (Other)
  Sender: FDA-Public Use
  Company Number: None

PATIENT
  Age: 41 Year
  Sex: Female
  Weight: 45.3597 kg

DRUGS (1)
  1. LORTAB [Suspect]
     Indication: RADICULOPATHY
     Dosage: ONCE PO TID TWICE HS ORAL
     Route: 048

REACTIONS (2)
  - INADEQUATE ANALGESIA [None]
  - PHARMACEUTICAL PRODUCT COMPLAINT [None]
